FAERS Safety Report 22066341 (Version 1)
Quarter: 2023Q1

REPORT INFORMATION
  Report Type: Spontaneous
  Country: US (occurrence: US)
  Receive Date: 20230306
  Receipt Date: 20230306
  Transmission Date: 20230418
  Serious: No
  Sender: FDA-Public Use
  Company Number: US-TAKEDA-2023TUS020847

PATIENT
  Age: 25 Year
  Sex: Female
  Weight: 68 kg

DRUGS (1)
  1. VYVANSE [Suspect]
     Active Substance: LISDEXAMFETAMINE DIMESYLATE
     Indication: Attention deficit hyperactivity disorder
     Dosage: 1 DOSAGE FORM, QD
     Route: 048
     Dates: start: 20230130, end: 20230206

REACTIONS (7)
  - Drug ineffective [Unknown]
  - Migraine [Unknown]
  - Myalgia [Unknown]
  - Impaired quality of life [Unknown]
  - Product counterfeit [Unknown]
  - Fatigue [Unknown]
  - Product use issue [Unknown]
